FAERS Safety Report 9287083 (Version 1)
Quarter: 2013Q2

REPORT INFORMATION
  Report Type: Spontaneous
  Country: IT (occurrence: IT)
  Receive Date: 20130513
  Receipt Date: 20130513
  Transmission Date: 20140414
  Serious: Yes (Other)
  Sender: FDA-Public Use
  Company Number: IT-TEVA-402903ISR

PATIENT
  Age: 71 Year
  Sex: Female

DRUGS (3)
  1. AMLODIPINA BESILATO [Suspect]
     Indication: HYPERTENSION
     Dosage: 5 MILLIGRAM DAILY;
     Route: 048
     Dates: start: 20130422, end: 20130422
  2. ENAPREN 20 MG [Concomitant]
     Indication: HYPERTENSION
     Dates: start: 20130101, end: 20130423
  3. AMOXICILLINA TRIIDRATO/POTASSIO CLAVULANATO [Concomitant]
     Indication: COUGH
     Dates: start: 20130419, end: 20130423

REACTIONS (2)
  - Hypertensive crisis [Recovering/Resolving]
  - Headache [Recovering/Resolving]
